FAERS Safety Report 16673477 (Version 1)
Quarter: 2019Q3

REPORT INFORMATION
  Report Type: Spontaneous
  Country: ES (occurrence: ES)
  Receive Date: 20190806
  Receipt Date: 20190806
  Transmission Date: 20191004
  Serious: Yes (Hospitalization)
  Sender: FDA-Public Use
  Company Number: ES-PFIZER INC-2019331870

PATIENT
  Age: 80 Year
  Sex: Female

DRUGS (7)
  1. EUTIROX [Concomitant]
     Active Substance: LEVOTHYROXINE SODIUM
     Dosage: 25 UG, UNK
  2. ADIRO [Concomitant]
     Active Substance: ASPIRIN
     Dosage: 100 MG, UNK
  3. LYRICA [Suspect]
     Active Substance: PREGABALIN
     Indication: HYPOAESTHESIA
     Dosage: 75 MG, 3X/DAY(EVERY 8 HOURS 1-1-1)
     Route: 048
     Dates: start: 20110705
  4. FLUTOX [CLOPERASTINE FENDIZOATE] [Suspect]
     Active Substance: CLOPERASTINE FENDIZOATE
     Indication: CATARRH
     Dosage: UNK
     Route: 048
     Dates: start: 20190704, end: 201907
  5. AMERIDE [AMILORIDE HYDROCHLORIDE;HYDROCHLOROTHIAZIDE] [Concomitant]
     Dosage: UNK
  6. LEXATIN [BROMAZEPAM] [Concomitant]
     Active Substance: BROMAZEPAM
     Dosage: UNK
  7. ITRAGERM [Concomitant]
     Dosage: 50 MG, UNK

REACTIONS (2)
  - Dermatitis bullous [Recovering/Resolving]
  - Generalised erythema [Recovering/Resolving]

NARRATIVE: CASE EVENT DATE: 20190705
